FAERS Safety Report 7261857-2 (Version None)
Quarter: 2011Q1

REPORT INFORMATION
  Report Type: 
  Country: None (occurrence: None)
  Receive Date: 20110130
  Receipt Date: 20101129
  Transmission Date: 20110831
  Serious: No
  Sender: FDA-Public Use
  Company Number: US-ABBOTT-10P-163-0688797-00

PATIENT
  Weight: 87.168 kg

DRUGS (6)
  1. LYRICA [Concomitant]
     Indication: NERVE INJURY
  2. HUMIRA [Suspect]
     Indication: ANKYLOSING SPONDYLITIS
     Dates: start: 20091101
  3. METHOTREXATE [Concomitant]
     Indication: ANKYLOSING SPONDYLITIS
     Dosage: 6 TABLETS ON MONDAYS
  4. ACIPHEX [Concomitant]
     Indication: NAUSEA
  5. SULFASALAZINE [Concomitant]
     Indication: ANKYLOSING SPONDYLITIS
  6. FOLIC ACID [Concomitant]
     Indication: VITAMIN SUPPLEMENTATION

REACTIONS (5)
  - BACK PAIN [None]
  - WHEEZING [None]
  - COUGH [None]
  - BRONCHITIS [None]
  - DYSPNOEA [None]
